FAERS Safety Report 10535203 (Version 1)
Quarter: 2014Q4

REPORT INFORMATION
  Report Type: Spontaneous
  Country: DE (occurrence: DE)
  Receive Date: 20141022
  Receipt Date: 20141022
  Transmission Date: 20150529
  Serious: Yes (Other)
  Sender: FDA-Public Use
  Company Number: DE-TEVA-515732GER

PATIENT
  Age: 76 Year
  Sex: Female

DRUGS (6)
  1. LIPOTALON [Interacting]
     Active Substance: DEXAMETHASONE PALMITATE
     Route: 065
     Dates: start: 20141010
  2. DICLOFENAC RATIOPHARM 100MG ZAEPFCHEN [Suspect]
     Active Substance: DICLOFENAC
     Indication: BACK PAIN
     Dosage: 100 MICROGRAM DAILY;
     Route: 054
     Dates: start: 20141008
  3. DICLOFENAC RATIOPHARM 100MG ZAEPFCHEN [Interacting]
     Active Substance: DICLOFENAC
     Dosage: 300 MILLIGRAM DAILY;
     Route: 054
     Dates: start: 20141009
  4. ASS 100 [Concomitant]
     Active Substance: ASPIRIN
     Indication: OCULAR VASCULAR DISORDER
     Dosage: 100 MILLIGRAM DAILY;
     Route: 048
  5. DICLOFENAC RATIOPHARM 100MG ZAEPFCHEN [Interacting]
     Active Substance: DICLOFENAC
     Dosage: 200 MILLIGRAM DAILY;
     Route: 054
     Dates: start: 20141010
  6. MEAVERIN [Interacting]
     Active Substance: MEPIVACAINE HYDROCHLORIDE
     Route: 065
     Dates: start: 20141010

REACTIONS (5)
  - Dizziness [Recovering/Resolving]
  - Swollen tongue [Recovering/Resolving]
  - Respiratory distress [Recovering/Resolving]
  - Accidental overdose [Recovered/Resolved]
  - Drug interaction [Unknown]

NARRATIVE: CASE EVENT DATE: 201410
